FAERS Safety Report 13685125 (Version 1)
Quarter: 2017Q2

REPORT INFORMATION
  Report Type: Spontaneous
  Country: US (occurrence: US)
  Receive Date: 20170623
  Receipt Date: 20170623
  Transmission Date: 20170830
  Serious: No
  Sender: FDA-Public Use
  Company Number: US-BAUSCH-BL-2016-026934

PATIENT
  Sex: Female

DRUGS (1)
  1. SOLODYN [Suspect]
     Active Substance: MINOCYCLINE HYDROCHLORIDE
     Indication: RASH
     Dosage: POSSIBLY 65MG
     Route: 048
     Dates: start: 20161029, end: 201611

REACTIONS (4)
  - Pain in extremity [Recovering/Resolving]
  - Off label use [Unknown]
  - Hypoaesthesia [Recovering/Resolving]
  - Swelling [Recovering/Resolving]

NARRATIVE: CASE EVENT DATE: 2016
